FAERS Safety Report 6644945-0 (Version None)
Quarter: 2010Q1

REPORT INFORMATION
  Report Type: 
  Country: None (occurrence: None)
  Receive Date: 20100322
  Receipt Date: 20100310
  Transmission Date: 20100710
  Serious: Yes (Hospitalization, Other)
  Sender: FDA-Public Use
  Company Number: PHHY2010BR14171

PATIENT
  Age: 53 Year
  Sex: Female
  Weight: 75 kg

DRUGS (5)
  1. DIOVAN [Suspect]
     Indication: HYPERTENSION
     Dosage: 160/5 MG, 1 DF DAILY
     Route: 048
     Dates: end: 20100101
  2. DIOVAN [Suspect]
     Dosage: 160/10 MG, 1 TABLET DAILY
     Route: 048
     Dates: start: 20100101, end: 20100225
  3. ATENOLOL [Concomitant]
     Indication: HYPERTENSION
     Dosage: 2 TABLETS DAILY
     Route: 048
  4. ATENOLOL [Concomitant]
     Dosage: 1 TABLET DAILY
     Route: 048
     Dates: start: 20100225
  5. ESTROFEM [Concomitant]
     Indication: MENOPAUSE
     Dosage: 1 TABLET DAILY
     Route: 065

REACTIONS (6)
  - HEADACHE [None]
  - HYPERTENSION [None]
  - NAUSEA [None]
  - PANIC DISORDER [None]
  - PRURITUS [None]
  - TREMOR [None]
